FAERS Safety Report 17268496 (Version 1)
Quarter: 2020Q1

REPORT INFORMATION
  Report Type: Spontaneous
  Country: US (occurrence: US)
  Receive Date: 20200114
  Receipt Date: 20200114
  Transmission Date: 20200409
  Serious: No
  Sender: FDA-Public Use
  Company Number: US-XTTRIUM LABORATORIES, INC-2078952

PATIENT
  Age: 60 Year
  Sex: Male

DRUGS (1)
  1. CHLORHEXIDINE GLUCONATE. [Suspect]
     Active Substance: CHLORHEXIDINE GLUCONATE
     Indication: PRODUCT USED FOR UNKNOWN INDICATION
     Route: 048

REACTIONS (4)
  - Gingival pruritus [Unknown]
  - Dyspnoea [Unknown]
  - Mouth swelling [Unknown]
  - Dry mouth [Unknown]

NARRATIVE: CASE EVENT DATE: 20190910
